FAERS Safety Report 25539351 (Version 1)
Quarter: 2025Q3

REPORT INFORMATION
  Report Type: Spontaneous
  Country: JP (occurrence: JP)
  Receive Date: 20250710
  Receipt Date: 20250710
  Transmission Date: 20251021
  Serious: No
  Sender: PFIZER
  Company Number: JP-PFIZER INC-202500137292

PATIENT

DRUGS (1)
  1. PAXLOVID [Suspect]
     Active Substance: NIRMATRELVIR\RITONAVIR
     Indication: COVID-19 treatment
     Dosage: [NIRMATRELVIR 600 MG] PER DOSE, [RITONAVIR 200 MG] PER DOSE
     Route: 048

REACTIONS (1)
  - Product prescribing error [Unknown]
